FAERS Safety Report 8548901-7 (Version None)
Quarter: 2012Q3

REPORT INFORMATION
  Report Type: 
  Country: None (occurrence: None)
  Receive Date: 20120730
  Receipt Date: 20120726
  Transmission Date: 20120928
  Serious: Yes (Death, Other)
  Sender: FDA-Public Use
  Company Number: PHHY2012BR065173

PATIENT
  Age: 46 Year
  Sex: Male

DRUGS (1)
  1. AMLODOPINE BESYLATE AND VALSARTAN [Suspect]
     Indication: HYPERTENSION
     Dosage: 1 DF (320/10 MG), QD
     Route: 048

REACTIONS (2)
  - LIVER DISORDER [None]
  - DIABETES MELLITUS INADEQUATE CONTROL [None]
